FAERS Safety Report 8480086-8 (Version None)
Quarter: 2012Q2

REPORT INFORMATION
  Report Type: 
  Country: None (occurrence: None)
  Receive Date: 20120629
  Receipt Date: 20120620
  Transmission Date: 20120825
  Serious: Yes (Other)
  Sender: FDA-Public Use
  Company Number: US-ELI_LILLY_AND_COMPANY-US201206008461

PATIENT
  Age: 20 Year
  Sex: Male

DRUGS (3)
  1. STRATTERA [Suspect]
     Dosage: UNK, UNKNOWN
  2. ADDERALL 5 [Concomitant]
     Dosage: UNK, UNKNOWN
  3. ATENOLOL [Concomitant]
     Dosage: UNK, UNKNOWN

REACTIONS (1)
  - VENTRICULAR EXTRASYSTOLES [None]
